FAERS Safety Report 9117148 (Version 1)
Quarter: 2013Q1

REPORT INFORMATION
  Report Type: Spontaneous
  Country: CA (occurrence: CA)
  Receive Date: 20130225
  Receipt Date: 20130225
  Transmission Date: 20140127
  Serious: Yes (Hospitalization)
  Sender: FDA-Public Use
  Company Number: CA-AMGEN-CANSP2013011778

PATIENT
  Age: 52 Year
  Sex: Female

DRUGS (2)
  1. XGEVA [Suspect]
     Indication: BREAST CANCER
     Dates: start: 20120910
  2. ZOLADEX                            /00732101/ [Concomitant]
     Dosage: UNK UNK, QMO

REACTIONS (1)
  - Spinal operation [Recovered/Resolved]
